FAERS Safety Report 9132969 (Version 2)
Quarter: 2013Q3

REPORT INFORMATION
  Report Type: Report from Study
  Country: US (occurrence: US)
  Receive Date: 20130301
  Receipt Date: 20130923
  Transmission Date: 20140515
  Serious: Yes (Hospitalization)
  Sender: FDA-Public Use
  Company Number: US-MERCK-1302USA012221

PATIENT
  Age: 71 Year
  Sex: Male
  Weight: 94.3 kg

DRUGS (14)
  1. ZOLINZA [Suspect]
     Indication: T-CELL LYMPHOMA
     Dosage: 400 MG, QD (EVERY 28 DAYS PER CYCLE)
     Route: 048
     Dates: start: 20130115, end: 20130123
  2. ZOLINZA [Suspect]
     Dosage: 200 MG, QD
     Route: 048
     Dates: start: 20130129
  3. SIMVASTATIN TABLETS, USP [Concomitant]
     Dosage: UNK
     Dates: start: 2001
  4. METOPROLOL TARTRATE [Concomitant]
     Dosage: UNK
     Dates: start: 201009
  5. ZOLOFT [Concomitant]
     Dosage: UNK
     Dates: start: 200702
  6. NOVOLOG [Concomitant]
     Dosage: UNK
     Dates: start: 201009
  7. MAGNESIUM (UNSPECIFIED) [Concomitant]
     Dosage: UNK
     Dates: start: 201206
  8. ATARAX (HYDROXYZINE HYDROCHLORIDE) [Concomitant]
     Dosage: UNK
     Dates: start: 201110
  9. TRICOR (ADENOSINE) [Concomitant]
     Dosage: UNK
     Dates: start: 2001
  10. GABAPENTIN [Concomitant]
     Dosage: UNK
     Dates: start: 201205
  11. ALLOPURINOL [Concomitant]
     Dosage: UNK
     Dates: start: 1985
  12. VITAMIN D (UNSPECIFIED) [Concomitant]
     Dosage: UNK
     Dates: start: 201203
  13. TRIAMCINOLON E [Concomitant]
     Dosage: UNK
     Dates: start: 201205
  14. PLAVIX [Concomitant]
     Dosage: UNK
     Dates: start: 2001

REACTIONS (1)
  - Sepsis [Recovered/Resolved]
